FAERS Safety Report 9044777 (Version 1)
Quarter: 2013Q1

REPORT INFORMATION
  Report Type: Report from Study
  Country: US (occurrence: US)
  Receive Date: 20130130
  Receipt Date: 20130130
  Transmission Date: 20140127
  Serious: No
  Sender: FDA-Public Use
  Company Number: US-ABBOTT-12P-163-0967433-00

PATIENT
  Age: 28 Year
  Sex: Male

DRUGS (5)
  1. HUMIRA 40 MG/0.8 ML PEN [Suspect]
     Indication: PSORIATIC ARTHROPATHY
     Route: 058
     Dates: start: 20120629
  2. METFORMIN [Concomitant]
     Indication: DIABETES MELLITUS
     Dosage: 500MG DAILY
     Route: 048
  3. BYDUREON [Concomitant]
     Indication: DIABETES MELLITUS
     Dosage: 2MG WEEKLY ON FRIDAYS
     Route: 058
  4. HYDROCHLORTHIAZID [Concomitant]
     Indication: HYPERTENSION
     Dosage: 25MG DAILY
     Route: 048
  5. NAXOPREN [Concomitant]
     Indication: PAIN
     Route: 048

REACTIONS (2)
  - Constipation [Unknown]
  - Nausea [Unknown]
